FAERS Safety Report 7269920-7 (Version None)
Quarter: 2011Q1

REPORT INFORMATION
  Report Type: 
  Country: None (occurrence: None)
  Receive Date: 20110125
  Receipt Date: 20110125
  Transmission Date: 20110831
  Serious: Yes (Other)
  Sender: FDA-Public Use
  Company Number: None

PATIENT
  Sex: Male
  Weight: 85 kg

DRUGS (1)
  1. PRADAXA [Suspect]
     Indication: ATRIAL FIBRILLATION
     Dosage: 150MG Q12HOURS PO
     Route: 048

REACTIONS (3)
  - THERAPY CESSATION [None]
  - SELF-MEDICATION [None]
  - ABDOMINAL PAIN [None]
